FAERS Safety Report 25121673 (Version 1)
Quarter: 2025Q1

REPORT INFORMATION
  Report Type: Spontaneous
  Country: US (occurrence: US)
  Receive Date: 20250326
  Receipt Date: 20250326
  Transmission Date: 20250408
  Serious: No
  Sender: ALKEM
  Company Number: US-ALKEM LABORATORIES LIMITED-US-ALKEM-2024-12420

PATIENT
  Age: 26 Year
  Sex: Male

DRUGS (4)
  1. AZATHIOPRINE [Suspect]
     Active Substance: AZATHIOPRINE
     Indication: Behcet^s syndrome
     Route: 065
  2. COLCHICINE [Suspect]
     Active Substance: COLCHICINE
     Indication: Behcet^s syndrome
     Route: 065
  3. PREDNISONE [Suspect]
     Active Substance: PREDNISONE
     Indication: Behcet^s syndrome
     Route: 065
  4. PREDNISONE [Suspect]
     Active Substance: PREDNISONE
     Route: 065

REACTIONS (1)
  - Therapy non-responder [Unknown]
